FAERS Safety Report 7013950-7 (Version None)
Quarter: 2010Q3

REPORT INFORMATION
  Report Type: 
  Country: None (occurrence: None)
  Receive Date: 20100924
  Receipt Date: 20100917
  Transmission Date: 20110219
  Serious: Yes (Other)
  Sender: FDA-Public Use
  Company Number: DE-AMGEN-QUU439600

PATIENT
  Age: 57 Year
  Sex: Male

DRUGS (4)
  1. ENBREL [Suspect]
     Indication: PSORIATIC ARTHROPATHY
     Route: 058
     Dates: start: 20081125, end: 20100101
  2. NOVALGIN [Concomitant]
     Dosage: AS NEEDED
  3. DICLAC [Concomitant]
     Dosage: UNKNOWN
  4. GLUCOCORTICOIDS [Concomitant]

REACTIONS (3)
  - IMPAIRED HEALING [None]
  - MEDICAL DEVICE CHANGE [None]
  - MEDICAL DEVICE COMPLICATION [None]
